FAERS Safety Report 23975475 (Version 1)
Quarter: 2024Q2

REPORT INFORMATION
  Report Type: Spontaneous
  Country: US (occurrence: US)
  Receive Date: 20240614
  Receipt Date: 20240614
  Transmission Date: 20240716
  Serious: No
  Sender: FDA-Public Use
  Company Number: US-UCBSA-2024020468

PATIENT
  Sex: Male
  Weight: 136.05 kg

DRUGS (1)
  1. BIMZELX [Suspect]
     Active Substance: BIMEKIZUMAB-BKZX
     Indication: Psoriasis
     Dosage: 320 MILLIGRAM, AT WEEK 16 THEN EVERY 4 WEEKS THEREAFTER AS DIRECTED
     Route: 058
     Dates: start: 202312

REACTIONS (3)
  - Throat irritation [Unknown]
  - Dysphagia [Unknown]
  - Inappropriate schedule of product administration [Unknown]
